FAERS Safety Report 7766508-6 (Version None)
Quarter: 2011Q3

REPORT INFORMATION
  Report Type: 
  Country: None (occurrence: None)
  Receive Date: 20110922
  Receipt Date: 20110915
  Transmission Date: 20111222
  Serious: No
  Sender: FDA-Public Use
  Company Number: US-BIOGENIDEC-2011BI035678

PATIENT
  Age: 43 Year
  Sex: Female

DRUGS (3)
  1. TYSABRI [Suspect]
     Indication: MULTIPLE SCLEROSIS
     Route: 042
     Dates: start: 20100201, end: 20101001
  2. TYSABRI [Suspect]
     Route: 042
     Dates: start: 20080101, end: 20080101
  3. TYSABRI [Suspect]
     Route: 042
     Dates: start: 20110301

REACTIONS (3)
  - GAIT DISTURBANCE [None]
  - DIARRHOEA [None]
  - NEUROPSYCHOLOGICAL TEST ABNORMAL [None]
